FAERS Safety Report 13594285 (Version 1)
Quarter: 2017Q2

REPORT INFORMATION
  Report Type: Spontaneous
  Country: US (occurrence: US)
  Receive Date: 20170530
  Receipt Date: 20170530
  Transmission Date: 20170830
  Serious: No
  Sender: FDA-Public Use
  Company Number: US-PFIZER INC-2017234347

PATIENT
  Sex: Female

DRUGS (2)
  1. ADVIL [Suspect]
     Active Substance: IBUPROFEN
     Indication: PAIN
     Dosage: 2 DF, 1X/DAY (TWO TABLETS THIS MORNING )
  2. ADVIL [Suspect]
     Active Substance: IBUPROFEN
     Dosage: 3 DF, (3 AT ONE TIME)

REACTIONS (1)
  - Drug ineffective [Unknown]
